FAERS Safety Report 17531876 (Version 1)
Quarter: 2020Q1

REPORT INFORMATION
  Report Type: Spontaneous
  Country: CN (occurrence: CN)
  Receive Date: 20200312
  Receipt Date: 20200312
  Transmission Date: 20200409
  Serious: Yes (Other)
  Sender: FDA-Public Use
  Company Number: CN-ABBVIE-20K-035-3308501-00

PATIENT
  Age: 29 Year
  Weight: 52.5 kg

DRUGS (4)
  1. ARBIDOL [Concomitant]
     Indication: CORONA VIRUS INFECTION
  2. ARBIDOL [Concomitant]
     Indication: PNEUMONIA VIRAL
     Route: 048
     Dates: start: 20200127, end: 20200216
  3. ALUVIA 200/50 [Suspect]
     Active Substance: LOPINAVIR\RITONAVIR
     Indication: PNEUMONIA VIRAL
     Route: 048
     Dates: start: 20200127, end: 20200216
  4. ALUVIA 200/50 [Suspect]
     Active Substance: LOPINAVIR\RITONAVIR
     Indication: CORONA VIRUS INFECTION

REACTIONS (2)
  - Neutrophil count decreased [Recovered/Resolved]
  - Off label use [Unknown]

NARRATIVE: CASE EVENT DATE: 20200127
